FAERS Safety Report 9767703 (Version 1)
Quarter: 2013Q3

REPORT INFORMATION
  Report Type: Spontaneous
  Country: JP (occurrence: None)
  Receive Date: 20130828
  Receipt Date: 20130828
  Transmission Date: 20140515
  Serious: Yes (Death)
  Sender: FDA-Public Use
  Company Number: TCI2013A05000

PATIENT
  Age: 92 Year
  Sex: Female

DRUGS (3)
  1. ACTOS [Suspect]
     Indication: DIABETES MELLITUS
     Route: 048
  2. MESINA [Suspect]
     Route: 048
  3. EQUA [Suspect]
     Route: 048

REACTIONS (2)
  - Hyponatraemia [None]
  - Oedema [None]
